FAERS Safety Report 7031479-7 (Version None)
Quarter: 2010Q4

REPORT INFORMATION
  Report Type: 
  Country: None (occurrence: None)
  Receive Date: 20101006
  Receipt Date: 20101006
  Transmission Date: 20110411
  Serious: Yes (Hospitalization)
  Sender: FDA-Public Use
  Company Number: US-PFIZER INC-2010123881

PATIENT
  Sex: Male
  Weight: 104.31 kg

DRUGS (8)
  1. BLINDED *IBUPROFEN [Suspect]
     Dosage: UNK
     Route: 048
     Dates: start: 20070828, end: 20100506
  2. NAPROXEN [Suspect]
     Dosage: UNK
     Route: 048
     Dates: start: 20070828, end: 20100506
  3. BLINDED *NO SUBJECT DRUG [Suspect]
     Dosage: UNK
     Route: 048
     Dates: start: 20070828, end: 20100506
  4. BLINDED *PLACEBO [Suspect]
     Dosage: UNK
     Route: 048
     Dates: start: 20070828, end: 20100506
  5. BLINDED CELECOXIB [Suspect]
     Dosage: UNK
     Route: 048
     Dates: start: 20070828, end: 20100506
  6. BLINDED IBUPROFEN [Suspect]
     Dosage: UNK
     Route: 048
     Dates: start: 20070828, end: 20100506
  7. NAPROXEN [Suspect]
     Dosage: UNK
     Route: 048
     Dates: start: 20070828, end: 20100506
  8. COUMADIN [Suspect]

REACTIONS (3)
  - DEEP VEIN THROMBOSIS [None]
  - HAEMATURIA [None]
  - PULMONARY EMBOLISM [None]
